FAERS Safety Report 7547193-5 (Version None)
Quarter: 2011Q2

REPORT INFORMATION
  Report Type: 
  Country: None (occurrence: None)
  Receive Date: 20110614
  Receipt Date: 20110606
  Transmission Date: 20111010
  Serious: Yes (Other)
  Sender: FDA-Public Use
  Company Number: US-UCBSA-034654

PATIENT
  Sex: Female
  Weight: 51 kg

DRUGS (2)
  1. BENADRYL [Concomitant]
     Indication: INSOMNIA
     Route: 048
     Dates: start: 19980101
  2. VIMPAT [Suspect]
     Indication: CONVULSION
     Dosage: 100 MG IN AM AND 150 MG QHS
     Route: 048
     Dates: start: 20090601

REACTIONS (10)
  - VISION BLURRED [None]
  - LACERATION [None]
  - NAUSEA [None]
  - POLLAKIURIA [None]
  - VOMITING [None]
  - DIZZINESS [None]
  - CONVULSION [None]
  - FREQUENT BOWEL MOVEMENTS [None]
  - INSOMNIA [None]
  - FATIGUE [None]
